FAERS Safety Report 9010998 (Version 1)
Quarter: 2013Q1

REPORT INFORMATION
  Report Type: Spontaneous
  Country: US (occurrence: US)
  Receive Date: 20130109
  Receipt Date: 20130109
  Transmission Date: 20140127
  Serious: Yes (Disabling)
  Sender: FDA-Public Use
  Company Number: US-009507513-1301USA002419

PATIENT
  Sex: 0

DRUGS (1)
  1. PROPECIA [Suspect]
     Indication: ANDROGENETIC ALOPECIA
     Dosage: UNK
     Route: 048
     Dates: start: 200001, end: 200401

REACTIONS (4)
  - Anxiety [Unknown]
  - Erectile dysfunction [Unknown]
  - Testicular pain [Unknown]
  - Depression [Unknown]
